FAERS Safety Report 13467784 (Version 1)
Quarter: 2017Q2

REPORT INFORMATION
  Report Type: Spontaneous
  Country: US (occurrence: US)
  Receive Date: 20170421
  Receipt Date: 20170421
  Transmission Date: 20170830
  Serious: Yes (Other)
  Sender: FDA-Public Use
  Company Number: US-NAPPMUNDI-USA-2017-0135997

PATIENT
  Sex: Female

DRUGS (3)
  1. METHADONE [Suspect]
     Active Substance: METHADONE HYDROCHLORIDE
     Indication: BACK PAIN
     Dosage: (2 X 10 MG) 20 MG, DAILY
     Route: 065
  2. OXYCODONE HYDROCHLORIDE (SIMILAR TO NDA 22-272) [Suspect]
     Active Substance: OXYCODONE HYDROCHLORIDE
     Indication: BACK PAIN
     Dosage: (4 X 30 MG) 120 MG, DAILY
     Route: 048
  3. OXYCODONE HYDROCHLORIDE (SIMILAR TO NDA 22-272) [Suspect]
     Active Substance: OXYCODONE HYDROCHLORIDE
     Dosage: UNK
     Route: 048

REACTIONS (3)
  - Intentional product use issue [Recovered/Resolved]
  - Drug use disorder [Recovering/Resolving]
  - Maternal exposure during pregnancy [Unknown]
